FAERS Safety Report 4718896-2 (Version None)
Quarter: 2005Q3

REPORT INFORMATION
  Report Type: 
  Country: None (occurrence: None)
  Receive Date: 20050719
  Receipt Date: 20050705
  Transmission Date: 20060218
  Serious: Yes (Other)
  Sender: FDA-Public Use
  Company Number: 2005083602

PATIENT
  Age: 79 Year
  Sex: Female
  Weight: 84 kg

DRUGS (10)
  1. PREGABALIN (PREGABALIN) [Suspect]
     Indication: DIABETIC NEUROPATHY
     Dosage: 75 MG (1 IN 1 D), ORAL
     Route: 048
     Dates: start: 20050328, end: 20050330
  2. SINTROM [Concomitant]
  3. UNIKET (ISOSORVIDE MONONITRATE) [Concomitant]
  4. NPH INSULIN [Concomitant]
  5. FERO-GRAD (FERROUS SULFATE) [Concomitant]
  6. CAPOTEN [Concomitant]
  7. NORVASC [Concomitant]
  8. ALLOPURINOL [Concomitant]
  9. SERACTIL (DEXIBUPROFEN) [Concomitant]
  10. FUROSEMIDE [Concomitant]

REACTIONS (2)
  - DRUG INEFFECTIVE [None]
  - HEPATITIS TOXIC [None]
